FAERS Safety Report 12988761 (Version 1)
Quarter: 2016Q4

REPORT INFORMATION
  Report Type: Spontaneous
  Country: US (occurrence: US)
  Receive Date: 20161130
  Receipt Date: 20161130
  Transmission Date: 20170207
  Serious: Yes (Other)
  Sender: FDA-Public Use
  Company Number: US-BOIRON INC.-2016BOR00043

PATIENT
  Age: 75 Year
  Sex: Female
  Weight: 94.79 kg

DRUGS (8)
  1. VITAMIN D [Concomitant]
     Active Substance: CHOLECALCIFEROL
     Dosage: 500 MG, UNK
  2. COD LIVER OIL [Concomitant]
     Active Substance: COD LIVER OIL
  3. HYDROCHLOROTHIAZIDE. [Concomitant]
     Active Substance: HYDROCHLOROTHIAZIDE
     Dosage: 25 MG, UNK
  4. CHESTAL ADULT HONEY [Suspect]
     Active Substance: HOMEOPATHICS
     Dosage: 1 DOSAGE UNITS, ONCE
     Route: 048
     Dates: start: 20161111, end: 20161111
  5. CALCIUM [Concomitant]
     Active Substance: CALCIUM
  6. SALMON OIL [Concomitant]
     Active Substance: FISH OIL
     Dosage: 2 CAPSULES, UNK
  7. PROZAC [Concomitant]
     Active Substance: FLUOXETINE HYDROCHLORIDE
     Dosage: UNK MG, UNK
  8. MAGNESIUM WITHOUT VITAMIN D [Concomitant]

REACTIONS (7)
  - Dyspnoea [Recovered/Resolved]
  - Asthenia [Recovered/Resolved]
  - Throat irritation [Recovered/Resolved]
  - Productive cough [Recovered/Resolved]
  - Throat tightness [Recovered/Resolved]
  - Burning sensation [Recovered/Resolved]
  - Exophthalmos [Recovered/Resolved]

NARRATIVE: CASE EVENT DATE: 20161111
